FAERS Safety Report 14873368 (Version 2)
Quarter: 2018Q3

REPORT INFORMATION
  Report Type: Spontaneous
  Country: US (occurrence: US)
  Receive Date: 20180510
  Receipt Date: 20180802
  Transmission Date: 20181010
  Serious: No
  Sender: FDA-Public Use
  Company Number: US-PFIZER INC-2018191371

PATIENT
  Age: 68 Year
  Sex: Female

DRUGS (1)
  1. EUCRISA [Suspect]
     Active Substance: CRISABOROLE
     Indication: DERMATITIS ATOPIC
     Dosage: UNK, DAILY,(1 TOPICAL APPLICATION DAILY)
     Route: 061

REACTIONS (2)
  - Intentional product misuse [Unknown]
  - Drug ineffective [Unknown]
